FAERS Safety Report 6550751-8 (Version None)
Quarter: 2010Q1

REPORT INFORMATION
  Report Type: 
  Country: None (occurrence: None)
  Receive Date: 20100122
  Receipt Date: 20100122
  Transmission Date: 20100710
  Serious: No
  Sender: FDA-Public Use
  Company Number: None

PATIENT
  Age: 60 Year
  Sex: Male
  Weight: 134 kg

DRUGS (3)
  1. LISINOPRIL AND HYDROCHLOROTHIAZIDE [Suspect]
     Indication: DIABETES MELLITUS
     Dosage: 25/20 MG EVERY DAY PO
     Route: 048
     Dates: start: 20090505, end: 20091228
  2. LISINOPRIL AND HYDROCHLOROTHIAZIDE [Suspect]
     Indication: HYPERTENSION
     Dosage: 25/20 MG EVERY DAY PO
     Route: 048
     Dates: start: 20090505, end: 20091228
  3. FUROSEMIDE [Suspect]
     Indication: OEDEMA
     Dosage: 40 MG EVERY DAY PO
     Route: 048
     Dates: start: 20090902, end: 20091120

REACTIONS (2)
  - CONDITION AGGRAVATED [None]
  - RENAL IMPAIRMENT [None]
